FAERS Safety Report 10273703 (Version 2)
Quarter: 2014Q3

REPORT INFORMATION
  Report Type: Report from Study
  Country: BE (occurrence: BE)
  Receive Date: 20140702
  Receipt Date: 20140715
  Transmission Date: 20150326
  Serious: Yes (Hospitalization)
  Sender: FDA-Public Use
  Company Number: BE-TEVA-491789ISR

PATIENT
  Age: 61 Year
  Sex: Female
  Weight: 71 kg

DRUGS (9)
  1. PEMETREXED [Suspect]
     Active Substance: PEMETREXED
     Indication: NON-SMALL CELL LUNG CANCER
     Dosage: 30.4762 MILLIGRAM DAILY; DAY 1 OF 21 DAY CYCLE
     Route: 042
     Dates: start: 20130703, end: 20130813
  2. OXYCONTIN [Concomitant]
     Active Substance: OXYCODONE HYDROCHLORIDE
     Dates: start: 20130628
  3. NEUROBION [Concomitant]
     Active Substance: CYANOCOBALAMIN\PYRIDOXINE\THIAMINE
     Dates: start: 20130611
  4. PERINDOCYL [Concomitant]
     Dates: start: 2013
  5. DUROGESIC [Concomitant]
     Active Substance: FENTANYL
     Dates: start: 20130618
  6. FOLAVIT [Concomitant]
     Dates: start: 20130611
  7. D-VITAL CALCIUM [Concomitant]
     Dates: start: 2007
  8. CISPLATIN. [Suspect]
     Active Substance: CISPLATIN
     Indication: NON-SMALL CELL LUNG CANCER
     Dosage: 4.5714 MICROGRAM DAILY; DAY 1 OF 21 DAY CYCLE
     Route: 042
     Dates: start: 20130703, end: 20130813
  9. DEXAMETHASONE. [Concomitant]
     Active Substance: DEXAMETHASONE
     Dates: start: 20130722

REACTIONS (2)
  - Vomiting [Recovered/Resolved]
  - Myocardial ischaemia [Recovered/Resolved]

NARRATIVE: CASE EVENT DATE: 20130820
